FAERS Safety Report 7719186-6 (Version None)
Quarter: 2011Q3

REPORT INFORMATION
  Report Type: 
  Country: None (occurrence: None)
  Receive Date: 20110830
  Receipt Date: 20110823
  Transmission Date: 20111222
  Serious: Yes (Other)
  Sender: FDA-Public Use
  Company Number: PHHY2011AT75178

PATIENT
  Age: 47 Year
  Sex: Male
  Weight: 96 kg

DRUGS (1)
  1. AMOXICILLIN AND CLAVULANATE POTASSIUM [Suspect]
     Indication: ACUTE TONSILLITIS
     Dosage: 1 G, BID
     Dates: start: 20110726, end: 20110802

REACTIONS (1)
  - TINNITUS [None]
